FAERS Safety Report 9729557 (Version 2)
Quarter: 2014Q1

REPORT INFORMATION
  Report Type: Spontaneous
  Country: US (occurrence: US)
  Receive Date: 20131204
  Receipt Date: 20140102
  Transmission Date: 20141002
  Serious: Yes (Hospitalization)
  Sender: FDA-Public Use
  Company Number: US-GILEAD-2013-0089070

PATIENT
  Sex: Male

DRUGS (3)
  1. LETAIRIS [Suspect]
     Indication: PULMONARY HYPERTENSION
     Dosage: 5 MG, QD
     Route: 048
     Dates: start: 20130409
  2. LETAIRIS [Suspect]
     Indication: CARDIAC FAILURE CONGESTIVE
  3. LETAIRIS [Suspect]
     Indication: HYPERTENSION

REACTIONS (1)
  - Iron deficiency anaemia [Unknown]
